FAERS Safety Report 5729094-8 (Version None)
Quarter: 2008Q2

REPORT INFORMATION
  Report Type: 
  Country: None (occurrence: None)
  Receive Date: 20080506
  Receipt Date: 20080425
  Transmission Date: 20081010
  Serious: Yes (Other)
  Sender: FDA-Public Use
  Company Number: BR-PFIZER INC-2007067412

PATIENT
  Sex: Female
  Weight: 58 kg

DRUGS (3)
  1. EXUBERA [Suspect]
     Indication: DIABETES MELLITUS
     Dosage: DAILY DOSE:5MG
     Route: 055
     Dates: start: 20070801, end: 20071001
  2. EXUBERA [Suspect]
  3. LANTUS [Concomitant]
     Dosage: DAILY DOSE:24I.U.

REACTIONS (4)
  - DYSPNOEA [None]
  - HYPOGLYCAEMIA [None]
  - RESPIRATORY DISORDER [None]
  - TACHYPNOEA [None]
